FAERS Safety Report 21629677 (Version 4)
Quarter: 2023Q1

REPORT INFORMATION
  Report Type: Report from Study
  Country: GB (occurrence: GB)
  Receive Date: 20221122
  Receipt Date: 20230327
  Transmission Date: 20230417
  Serious: Yes (Hospitalization)
  Sender: FDA-Public Use
  Company Number: GB-JNJFOC-20221142803

PATIENT
  Age: 43 Year
  Sex: Female
  Weight: 84 kg

DRUGS (25)
  1. AMIVANTAMAB [Suspect]
     Active Substance: AMIVANTAMAB
     Indication: Non-small cell lung cancer metastatic
     Route: 042
     Dates: start: 20220922, end: 20221102
  2. CARBOPLATIN [Suspect]
     Active Substance: CARBOPLATIN
     Indication: Non-small cell lung cancer metastatic
     Route: 042
     Dates: start: 20220922, end: 20221102
  3. PEMETREXED [Suspect]
     Active Substance: PEMETREXED
     Indication: Non-small cell lung cancer metastatic
     Route: 042
     Dates: start: 20220922, end: 20221102
  4. EDOXABAN [Concomitant]
     Active Substance: EDOXABAN
     Indication: Pulmonary embolism
     Route: 048
     Dates: start: 20180101
  5. MAGNESIUM [Concomitant]
     Active Substance: MAGNESIUM
     Indication: Fatigue
     Dosage: DOSE 1 (DOSAGE UNIT NOT PROVIDED)
     Route: 048
     Dates: start: 20180101
  6. ACETAMINOPHEN [Concomitant]
     Active Substance: ACETAMINOPHEN
     Indication: Arthralgia
     Route: 048
     Dates: start: 20180101
  7. VITAMIN C [Concomitant]
     Active Substance: ASCORBIC ACID
     Indication: Vitamin supplementation
     Route: 048
     Dates: start: 20180101
  8. DENOSUMAB [Concomitant]
     Active Substance: DENOSUMAB
     Indication: Arthralgia
     Route: 058
     Dates: start: 20180101
  9. CALCIUM CARBONATE [Concomitant]
     Active Substance: CALCIUM CARBONATE
     Indication: Prophylaxis
     Dosage: DOSE: 1 (DOSAGE UNIT NOT PROVIDED)
     Route: 048
     Dates: start: 20180801
  10. CELEBREX [Concomitant]
     Active Substance: CELECOXIB
     Indication: Arthralgia
     Route: 048
     Dates: start: 20200101
  11. ORAMORPH SR SUSTAINED RELEASE [Concomitant]
     Active Substance: MORPHINE SULFATE
     Indication: Arthralgia
     Route: 048
     Dates: start: 20200101
  12. MORPHINE SULFATE [Concomitant]
     Active Substance: MORPHINE SULFATE
     Indication: Arthralgia
     Route: 048
     Dates: start: 20220401
  13. GABAPENTIN [Concomitant]
     Active Substance: GABAPENTIN
     Indication: Arthralgia
     Route: 048
     Dates: start: 20220801
  14. AMITRIPTYLINE [Concomitant]
     Active Substance: AMITRIPTYLINE
     Indication: Arthralgia
     Route: 048
     Dates: start: 20220801
  15. OXETACAINE [Concomitant]
     Active Substance: OXETHAZAINE
     Indication: Mouth ulceration
     Route: 048
     Dates: start: 20221004
  16. CLINDAMYCIN [Concomitant]
     Active Substance: CLINDAMYCIN
     Indication: Infusion related reaction
     Dosage: DOSE: 1 (DOSAGE UNIT NOT PROVIDED)
     Route: 061
     Dates: start: 20221004
  17. CHLORHEXIDINE [Concomitant]
     Active Substance: CHLORHEXIDINE
     Indication: Mouth ulceration
     Route: 048
     Dates: start: 20221004
  18. SODIUM FLUORIDE\SODIUM MONOFLUOROPHOSPHATE [Concomitant]
     Active Substance: SODIUM FLUORIDE\SODIUM MONOFLUOROPHOSPHATE
     Indication: Infusion related reaction
     Dosage: DOSE: 1 (DOSAGE UNIT NOT PROVIDED)
     Route: 048
     Dates: start: 20221004
  19. MINERAL OIL\PARAFFIN [Concomitant]
     Active Substance: MINERAL OIL\PARAFFIN
     Indication: Infusion related reaction
     Dosage: DOSE:1 (DOSAGE UNIT NOT PROVIDED)
     Route: 061
     Dates: start: 20221004
  20. ASPIRIN [Concomitant]
     Active Substance: ASPIRIN
     Indication: Mouth ulceration
     Route: 048
     Dates: start: 20221004
  21. HYDROCORTISONE [Concomitant]
     Active Substance: HYDROCORTISONE
     Indication: Infusion related reaction
     Dosage: DOSE:1 (DOSAGE UNIT NOT PROVIDED)
     Route: 061
     Dates: start: 20220922
  22. HYDROCORTISONE [Concomitant]
     Active Substance: HYDROCORTISONE
     Dosage: DOSE 1 (UNIT NOT SPECIFIED)
     Route: 061
     Dates: start: 20220928
  23. BETAMETHASONE VALERATE\FUSIDIC ACID [Concomitant]
     Active Substance: BETAMETHASONE VALERATE\FUSIDIC ACID
     Indication: Infusion related reaction
     Dosage: DOSE: 1 (DOSAGE UNIT NOT PROVIDED)
     Route: 061
     Dates: start: 20221004
  24. LYMECYCLINE [Concomitant]
     Active Substance: LYMECYCLINE
     Indication: Infusion related reaction
     Route: 048
     Dates: start: 20221004
  25. MIRENA [Concomitant]
     Active Substance: LEVONORGESTREL
     Indication: Contraception
     Dosage: DOSE: 1 (DOSAGE UNIT NOT PROVIDED)
     Route: 050

REACTIONS (1)
  - Dehydration [Not Recovered/Not Resolved]

NARRATIVE: CASE EVENT DATE: 20221117
